FAERS Safety Report 11209916 (Version 1)
Quarter: 2015Q2

REPORT INFORMATION
  Report Type: Spontaneous
  Country: US (occurrence: US)
  Receive Date: 20150622
  Receipt Date: 20150622
  Transmission Date: 20150821
  Serious: No
  Sender: FDA-Public Use
  Company Number: US-ASTELLAS-2014US008154

PATIENT
  Age: 71 Year
  Sex: Female

DRUGS (3)
  1. VESICARE [Suspect]
     Active Substance: SOLIFENACIN SUCCINATE
     Indication: HYPERTONIC BLADDER
     Route: 065
     Dates: start: 201405
  2. LISINOPRIL. [Concomitant]
     Active Substance: LISINOPRIL
     Indication: PRODUCT USED FOR UNKNOWN INDICATION
     Dosage: UNK UNK, UNKNOWN FREQ.
     Route: 065
  3. VESICARE [Suspect]
     Active Substance: SOLIFENACIN SUCCINATE
     Dosage: UNK, UNKNOWN FREQ.
     Route: 065
     Dates: end: 201409

REACTIONS (4)
  - Activities of daily living impaired [Recovered/Resolved]
  - Pain in extremity [Recovered/Resolved]
  - Arthralgia [Not Recovered/Not Resolved]
  - Fatigue [Recovered/Resolved]

NARRATIVE: CASE EVENT DATE: 201406
